FAERS Safety Report 7863458-1 (Version None)
Quarter: 2011Q4

REPORT INFORMATION
  Report Type: 
  Country: None (occurrence: None)
  Receive Date: 20111027
  Receipt Date: 20101203
  Transmission Date: 20120403
  Serious: No
  Sender: FDA-Public Use
  Company Number: US-AMGEN-USASP2010007617

PATIENT
  Age: 45 Year
  Sex: Male
  Weight: 168 kg

DRUGS (3)
  1. PLAQUENIL [Concomitant]
     Dosage: 200 MG, UNK
  2. METHOTREXATE [Concomitant]
  3. ENBREL [Suspect]
     Indication: PRODUCT USED FOR UNKNOWN INDICATION
     Dosage: 50 MG, UNK

REACTIONS (1)
  - MUSCLE SPASMS [None]
